FAERS Safety Report 17982989 (Version 1)
Quarter: 2020Q3

REPORT INFORMATION
  Report Type: Spontaneous
  Country: US (occurrence: US)
  Receive Date: 20200702
  Receipt Date: 20200702
  Transmission Date: 20201103
  Serious: Yes (Hospitalization)
  Sender: FDA-Public Use
  Company Number: None

PATIENT
  Age: 72 Year
  Sex: Male

DRUGS (1)
  1. TEMOZOLMIDE 100MG SUN PHARMACEUTICAL [Suspect]
     Active Substance: TEMOZOLOMIDE
     Indication: LUNG NEOPLASM MALIGNANT
     Dosage: OTHER DOSE:200 MG | 100 MG;OTHER FREQUENCY:AM | PM;?
     Route: 048
     Dates: start: 20200402, end: 202005

REACTIONS (3)
  - Incontinence [None]
  - Cough [None]
  - Dyspnoea [None]

NARRATIVE: CASE EVENT DATE: 20200526
